FAERS Safety Report 21847848 (Version 2)
Quarter: 2023Q1

REPORT INFORMATION
  Report Type: Spontaneous
  Country: FR (occurrence: FR)
  Receive Date: 20230111
  Receipt Date: 20230126
  Transmission Date: 20230418
  Serious: Yes (Other)
  Sender: FDA-Public Use
  Company Number: FR-002147023-NVSC2023FR005256

PATIENT
  Age: 80 Year
  Sex: Male

DRUGS (1)
  1. CERTICAN [Suspect]
     Active Substance: EVEROLIMUS
     Indication: Liver transplant
     Dosage: 1 DOSAGE FORM, QD (0.75 MG)
     Route: 048
     Dates: start: 2014

REACTIONS (6)
  - Acquired haemophilia [Unknown]
  - Haemorrhage [Unknown]
  - Contusion [Unknown]
  - Pain in jaw [Unknown]
  - Skin plaque [Unknown]
  - Pruritus [Unknown]

NARRATIVE: CASE EVENT DATE: 20190101
